FAERS Safety Report 8120072-0 (Version None)
Quarter: 2012Q1

REPORT INFORMATION
  Report Type: 
  Country: None (occurrence: None)
  Receive Date: 20120207
  Receipt Date: 20120126
  Transmission Date: 20120608
  Serious: Yes (Death, Hospitalization, Other)
  Sender: FDA-Public Use
  Company Number: US-PFIZER INC-2011261281

PATIENT
  Age: 60 Year
  Sex: Female
  Weight: 75 kg

DRUGS (19)
  1. VIDAZA [Suspect]
     Indication: ACUTE MYELOID LEUKAEMIA
     Dosage: 75 MG/M2, SC OR IV ON DAYS 1-7
     Dates: start: 20110903
  2. ACYCLOVIR [Concomitant]
  3. INSULIN [Concomitant]
  4. OXYCODONE [Concomitant]
  5. MYLOTARG [Suspect]
     Indication: ACUTE MYELOID LEUKAEMIA
     Dosage: 3 MG/M2, ON DAYS 4 AND 8
     Route: 042
     Dates: start: 20110907, end: 20110907
  6. OMEPRAZOLE [Concomitant]
  7. MEPERIDINE HCL [Concomitant]
  8. ZOLINZA [Suspect]
     Indication: ACUTE MYELOID LEUKAEMIA
     Dosage: 400 MG, ON DAYS 1-9
     Route: 048
     Dates: start: 20110903
  9. ALLOPURINOL [Concomitant]
  10. ALUMINIUM HYDROXIDE/DIPHENHYDRAMINE/MAGNESIUM HYDROXIDE/LIDOCAINE [Concomitant]
  11. ACETAMINOPHEN [Concomitant]
  12. CHLORHEXIDINE GLUCONATE [Concomitant]
  13. ALBUTEROL [Concomitant]
  14. LORATADINE [Concomitant]
  15. ONDANSETRON [Concomitant]
  16. DIPHENHYDRAMINE [Concomitant]
  17. LORAZEPAM [Concomitant]
  18. METOCLOPRAMIDE [Concomitant]
  19. PROCHLORPERAZINE [Concomitant]

REACTIONS (5)
  - SEPSIS [None]
  - FEBRILE NEUTROPENIA [None]
  - ACUTE MYELOID LEUKAEMIA [None]
  - PYREXIA [None]
  - DISEASE PROGRESSION [None]
